FAERS Safety Report 24827723 (Version 1)
Quarter: 2025Q1

REPORT INFORMATION
  Report Type: Report from Study
  Country: US (occurrence: US)
  Receive Date: 20250109
  Receipt Date: 20250109
  Transmission Date: 20250409
  Serious: Yes (Other)
  Sender: ABBVIE
  Company Number: US-ABBVIE-6076221

PATIENT
  Sex: Female

DRUGS (1)
  1. RINVOQ [Suspect]
     Active Substance: UPADACITINIB
     Indication: Rheumatoid arthritis
     Route: 048
     Dates: start: 20230301

REACTIONS (5)
  - Intervertebral disc protrusion [Recovering/Resolving]
  - Accident [Recovering/Resolving]
  - Rash pruritic [Recovering/Resolving]
  - Blood glucose increased [Unknown]
  - Arthralgia [Unknown]
